FAERS Safety Report 6796978-1 (Version None)
Quarter: 2010Q2

REPORT INFORMATION
  Report Type: 
  Country: None (occurrence: None)
  Receive Date: 20100624
  Receipt Date: 20100608
  Transmission Date: 20101027
  Serious: Yes (Other)
  Sender: FDA-Public Use
  Company Number: 20108837

PATIENT
  Sex: Female

DRUGS (6)
  1. LIORESAL [Suspect]
     Indication: MUSCLE SPASTICITY
     Dosage: DAILY, INTRATHECAL
     Route: 037
  2. DILAUDID [Concomitant]
  3. MORPHINE [Concomitant]
  4. BUPIVACAINE HCL [Concomitant]
  5. CLONIDINE [Concomitant]
  6. BACLOFEN [Concomitant]

REACTIONS (14)
  - BREATH ODOUR [None]
  - DIZZINESS [None]
  - EPILEPSY [None]
  - HYPERSENSITIVITY [None]
  - HYPOPHAGIA [None]
  - MALAISE [None]
  - MEDICAL DEVICE COMPLICATION [None]
  - NAUSEA [None]
  - PAIN [None]
  - SOMNOLENCE [None]
  - THERAPEUTIC RESPONSE DECREASED [None]
  - URINARY TRACT INFECTION [None]
  - VOMITING [None]
  - WEIGHT DECREASED [None]
